FAERS Safety Report 4629023-4 (Version None)
Quarter: 2005Q2

REPORT INFORMATION
  Report Type: 
  Country: None (occurrence: None)
  Receive Date: 20050407
  Receipt Date: 20050309
  Transmission Date: 20051028
  Serious: Yes (Death)
  Sender: FDA-Public Use
  Company Number: GB-BOEHRINGER INGELHEIM PHARMACEUTICALS, INC.-2005-UK-00406UK

PATIENT
  Sex: Female

DRUGS (10)
  1. COMBIVENT [Suspect]
  2. PREDNISOLONE [Concomitant]
     Route: 048
  3. BUDESONIDE [Concomitant]
     Route: 055
  4. FRUSEMIDE [Concomitant]
  5. CITALOPRAM HYDROBROMIDE [Concomitant]
  6. RISEDRONATE SODIUM [Concomitant]
  7. DONEPEZIL HCL [Concomitant]
  8. QUINAPRIL [Concomitant]
  9. OLANZAPINE [Concomitant]
  10. OTRIRALOLACTIN [Concomitant]

REACTIONS (2)
  - CEREBROVASCULAR ACCIDENT [None]
  - DEMENTIA [None]
